FAERS Safety Report 20808265 (Version 1)
Quarter: 2022Q2

REPORT INFORMATION
  Report Type: Spontaneous
  Country: US (occurrence: US)
  Receive Date: 20220510
  Receipt Date: 20220510
  Transmission Date: 20220721
  Serious: No
  Sender: FDA-Public Use
  Company Number: US-PTx-2021000046

PATIENT
  Sex: Male

DRUGS (4)
  1. LEUKINE [Suspect]
     Active Substance: SARGRAMOSTIM
     Indication: Pancreatic carcinoma
     Dosage: LEUKINE 250 MCG PWD SDV/INJ, 500 MCG SUBQ, DAILY FOR 5 DAYS
     Route: 058
     Dates: start: 20210323
  2. GEMCITABINE [Suspect]
     Active Substance: GEMCITABINE
     Indication: Pancreatic carcinoma
     Dosage: 2 WEEKS AGO
     Route: 065
  3. CISPLATIN [Suspect]
     Active Substance: CISPLATIN
     Indication: Pancreatic carcinoma
     Dosage: 2 WEEKS AGO
     Route: 065
  4. BACTERIOSTATIC WATER [Concomitant]
     Active Substance: WATER
     Indication: Product used for unknown indication
     Dosage: UNK
     Route: 065

REACTIONS (1)
  - Platelet count abnormal [Unknown]
